FAERS Safety Report 8916849 (Version 6)
Quarter: 2016Q1

REPORT INFORMATION
  Report Type: Report from Study
  Country: TH (occurrence: TH)
  Receive Date: 20121120
  Receipt Date: 20160212
  Transmission Date: 20160526
  Serious: Yes (Death, Hospitalization)
  Sender: FDA-Public Use
  Company Number: TH-ROCHE-1147542

PATIENT
  Age: 61 Year
  Sex: Male
  Weight: 70.9 kg

DRUGS (29)
  1. DOXORUBICIN [Suspect]
     Active Substance: DOXORUBICIN
     Indication: DIFFUSE LARGE B-CELL LYMPHOMA
     Dosage: LAST DOSE TAKEN 90 MG, LAST DOSE TAKEN ON 09/OCT/2012
     Route: 042
     Dates: start: 20120807
  2. AMLODIPINE [Concomitant]
     Active Substance: AMLODIPINE BESYLATE
     Indication: HYPERTENSION
     Route: 065
     Dates: end: 20121009
  3. ENARIL [Concomitant]
     Indication: HYPERTENSION
     Route: 065
     Dates: end: 20121009
  4. DEXAMETHASONE. [Concomitant]
     Active Substance: DEXAMETHASONE
     Indication: PREMEDICATION
     Route: 065
     Dates: start: 20120918, end: 20120918
  5. NORMAL SALINE [Concomitant]
     Active Substance: SODIUM CHLORIDE
     Indication: HYPOVOLAEMIA
     Route: 065
     Dates: start: 20121023, end: 20121106
  6. GLIPIZIDE. [Concomitant]
     Active Substance: GLIPIZIDE
     Indication: DIABETES MELLITUS
     Route: 065
     Dates: end: 20121107
  7. MIRACID [Concomitant]
     Route: 065
     Dates: start: 20121009, end: 20121015
  8. LASIX [Concomitant]
     Active Substance: FUROSEMIDE
     Route: 065
     Dates: start: 20121019, end: 20121019
  9. CYCLOPHOSPHAMIDE. [Suspect]
     Active Substance: CYCLOPHOSPHAMIDE
     Indication: DIFFUSE LARGE B-CELL LYMPHOMA
     Dosage: LAST DOSE TAKEN 1357.5 MG, LAST DOSE TAKEN ON 09/OCT/2012
     Route: 042
     Dates: start: 20120807
  10. BENADRYL (THAILAND) [Concomitant]
     Route: 065
     Dates: start: 20121009, end: 20121009
  11. ONSIA [Concomitant]
     Route: 065
     Dates: start: 20121009, end: 20121011
  12. RITUXIMAB [Suspect]
     Active Substance: RITUXIMAB
     Indication: DIFFUSE LARGE B-CELL LYMPHOMA
     Dosage: LAST DOSE TAKEN 500 ML, LAST DOSE CONCENTRATION TAKEN 1.35 MG/ML, LAST DOSE TAKEN ON 09/OCT/2012
     Route: 042
     Dates: start: 20120807
  13. PARACETAMOL [Concomitant]
     Active Substance: ACETAMINOPHEN
     Route: 065
     Dates: start: 20121009, end: 20121009
  14. ONSIA [Concomitant]
     Indication: PROPHYLAXIS
     Route: 065
     Dates: start: 20121009, end: 20121009
  15. DEXAMETHASONE. [Concomitant]
     Active Substance: DEXAMETHASONE
     Route: 065
     Dates: start: 20121009, end: 20121009
  16. MILK OF MAGNESIA [Concomitant]
     Active Substance: MAGNESIUM HYDROXIDE
     Indication: PROPHYLAXIS
     Route: 065
     Dates: start: 20120918, end: 20120922
  17. METFORMIN [Concomitant]
     Active Substance: METFORMIN HYDROCHLORIDE
     Indication: HYPERGLYCAEMIA
     Route: 065
     Dates: start: 20120918, end: 20121009
  18. UNISON ENEMA [Concomitant]
     Indication: CONSTIPATION
     Route: 065
     Dates: start: 20121105, end: 20121105
  19. SENOKOT [Concomitant]
     Active Substance: SENNOSIDES
     Indication: CONSTIPATION
     Route: 065
     Dates: start: 20121023, end: 20121023
  20. VINCRISTINE [Suspect]
     Active Substance: VINCRISTINE
     Indication: DIFFUSE LARGE B-CELL LYMPHOMA
     Dosage: LAST DOSE TAKEN 2 MG, LAST DOSE TAKEN ON 09/OCT/2012
     Route: 042
     Dates: start: 20120807
  21. PREDNISONE. [Suspect]
     Active Substance: PREDNISONE
     Indication: DIFFUSE LARGE B-CELL LYMPHOMA
     Dosage: LAST DOSE TAKEN 100 MG, LAST DOSE TAKEN ON 13/OCT/2012
     Route: 048
     Dates: start: 20120807
  22. HUMULIN NOS [Concomitant]
     Active Substance: INSULIN HUMAN
     Indication: DIABETES MELLITUS
     Route: 065
     Dates: end: 20121107
  23. HCTZ [Concomitant]
     Active Substance: HYDROCHLOROTHIAZIDE
     Indication: HYPERTENSION
     Route: 065
     Dates: end: 20121009
  24. BENADRYL (THAILAND) [Concomitant]
     Indication: PREMEDICATION
     Route: 065
     Dates: start: 20120918, end: 20120918
  25. MIRACID [Concomitant]
     Indication: PROPHYLAXIS
     Route: 065
     Dates: start: 20120918, end: 20120924
  26. MILK OF MAGNESIA [Concomitant]
     Active Substance: MAGNESIUM HYDROXIDE
     Route: 065
     Dates: start: 20121009, end: 20121011
  27. OMEPRAZOLE. [Concomitant]
     Active Substance: OMEPRAZOLE
     Indication: PROPHYLAXIS
     Route: 065
     Dates: start: 20121023, end: 20121107
  28. PARACETAMOL [Concomitant]
     Active Substance: ACETAMINOPHEN
     Indication: PREMEDICATION
     Route: 065
     Dates: start: 20120918, end: 20120918
  29. ONSIA [Concomitant]
     Indication: PREMEDICATION
     Route: 065
     Dates: start: 20120918, end: 20120920

REACTIONS (3)
  - Pneumonia [Fatal]
  - Sepsis [Fatal]
  - Cerebrovascular accident [Fatal]

NARRATIVE: CASE EVENT DATE: 20121018
